FAERS Safety Report 7917163-3 (Version None)
Quarter: 2011Q4

REPORT INFORMATION
  Report Type: 
  Country: None (occurrence: None)
  Receive Date: 20111116
  Receipt Date: 20111116
  Transmission Date: 20120403
  Serious: Yes (Death)
  Sender: FDA-Public Use
  Company Number: JP-BAYER-2011-108173

PATIENT
  Age: 78 Year
  Sex: Male

DRUGS (2)
  1. NEXAVAR [Suspect]
     Indication: HEPATIC NEOPLASM MALIGNANT
     Dosage: 200 MG, QD
     Route: 048
     Dates: start: 20110824, end: 20110920
  2. NEXAVAR [Suspect]
     Dosage: 200 MG, BID
     Route: 048
     Dates: start: 20110921, end: 20110926

REACTIONS (1)
  - RENAL FAILURE [None]
